FAERS Safety Report 5537433-6 (Version None)
Quarter: 2007Q4

REPORT INFORMATION
  Report Type: 
  Country: None (occurrence: None)
  Receive Date: 20071207
  Receipt Date: 20071126
  Transmission Date: 20080405
  Serious: Yes (Hospitalization)
  Sender: FDA-Public Use
  Company Number: FR-ROCHE-533334

PATIENT
  Age: 69 Year
  Sex: Female
  Weight: 66 kg

DRUGS (14)
  1. MYCOPHENOLATE MOFETIL [Suspect]
     Route: 048
     Dates: start: 20070309
  2. NEORAL [Suspect]
     Route: 065
     Dates: start: 20071117
  3. 1 SUSPECTED DRUG [Suspect]
     Dosage: DRUG: ANTI-IRL2
     Route: 065
  4. PREVISCAN [Concomitant]
     Dates: start: 20071120
  5. LORAZEPAM [Concomitant]
     Dates: start: 20071118
  6. ANAFRANIL [Concomitant]
     Dates: start: 20071120
  7. ZYPREXA [Concomitant]
     Dates: start: 20071117
  8. LASIX [Concomitant]
     Dates: start: 20071119, end: 20071119
  9. NEORECORMON [Concomitant]
     Dates: start: 20071119, end: 20071119
  10. NEORECORMON [Concomitant]
     Dates: start: 20071121, end: 20071121
  11. TAVANIC [Concomitant]
     Dates: start: 20071117
  12. SODIUM CHLORIDE [Concomitant]
     Dates: start: 20071116, end: 20071117
  13. ROCEPHIN [Concomitant]
     Dates: start: 20071117
  14. 1 CONCOMITANT DRUG [Concomitant]
     Dates: start: 20071116, end: 20071117

REACTIONS (1)
  - HYPERTHERMIA [None]
